FAERS Safety Report 4319161-8 (Version None)
Quarter: 2004Q1

REPORT INFORMATION
  Report Type: 
  Country: None (occurrence: None)
  Receive Date: 20040318
  Receipt Date: 20010927
  Transmission Date: 20041129
  Serious: Yes (Hospitalization)
  Sender: FDA-Public Use
  Company Number: 64886-2001-27

PATIENT
  Age: 70 Year
  Sex: Male

DRUGS (2)
  1. METHOTREXATE [Suspect]
     Indication: RHEUMATOID ARTHRITIS
     Dosage: 15 MG DAILY PO
     Route: 048
  2. PREDNISOLONE [Concomitant]

REACTIONS (5)
  - MYCOSIS FUNGOIDES [None]
  - PARAESTHESIA [None]
  - PURPURA [None]
  - RASH PAPULAR [None]
  - THROMBOCYTOPENIA [None]
